FAERS Safety Report 14576964 (Version 1)
Quarter: 2018Q1

REPORT INFORMATION
  Report Type: Spontaneous
  Country: US (occurrence: US)
  Receive Date: 20180225
  Receipt Date: 20180225
  Transmission Date: 20180509
  Serious: Yes (Life-Threatening, Hospitalization)
  Sender: FDA-Public Use
  Company Number: None

PATIENT
  Age: 79 Year
  Sex: Female
  Weight: 83.25 kg

DRUGS (3)
  1. ARIMIDEX [Suspect]
     Active Substance: ANASTROZOLE
     Indication: BREAST CANCER
     Dosage: ?          QUANTITY:30 TABLET(S);?
     Route: 048
     Dates: start: 20180101, end: 20180215
  2. LOVENOX [Concomitant]
     Active Substance: ENOXAPARIN SODIUM
  3. LEVOTHORIEN [Concomitant]

REACTIONS (3)
  - Thrombosis [None]
  - Renal injury [None]
  - Heart injury [None]

NARRATIVE: CASE EVENT DATE: 20180220
